FAERS Safety Report 8791312 (Version 1)
Quarter: 2012Q4

REPORT INFORMATION
  Report Type: Spontaneous
  Country: JP (occurrence: None)
  Receive Date: 20120912
  Receipt Date: 20120912
  Transmission Date: 20130627
  Serious: No
  Sender: FDA-Public Use
  Company Number: B0827800A

PATIENT
  Age: 25 Year
  Sex: Female

DRUGS (2)
  1. LAMOTRIGINE [Suspect]
     Indication: PARTIAL SEIZURES
  2. VALPROATE SODIUM [Concomitant]

REACTIONS (3)
  - Leukopenia [None]
  - Thrombocytopenia [None]
  - Normochromic normocytic anaemia [None]
